FAERS Safety Report 4909273-X (Version None)
Quarter: 2006Q1

REPORT INFORMATION
  Report Type: 
  Country: None (occurrence: None)
  Receive Date: 20060208
  Receipt Date: 20060208
  Transmission Date: 20060701
  Serious: No
  Sender: FDA-Public Use
  Company Number: None

PATIENT
  Age: 65 Year
  Sex: Female

DRUGS (2)
  1. TOPAMAX [Suspect]
     Dosage: 125 MG PO BID
     Route: 048
     Dates: start: 20050201, end: 20050701
  2. TOPAMAX [Suspect]

REACTIONS (9)
  - ABDOMINAL PAIN UPPER [None]
  - ALOPECIA [None]
  - AMNESIA [None]
  - DEMENTIA ALZHEIMER'S TYPE [None]
  - HEADACHE [None]
  - SKIN DISORDER [None]
  - SLEEP DISORDER [None]
  - URINARY RETENTION [None]
  - VISUAL DISTURBANCE [None]
